FAERS Safety Report 11424607 (Version 1)
Quarter: 2015Q3

REPORT INFORMATION
  Report Type: Spontaneous
  Country: CH (occurrence: CH)
  Receive Date: 20150827
  Receipt Date: 20150827
  Transmission Date: 20151125
  Serious: Yes (Hospitalization)
  Sender: FDA-Public Use
  Company Number: CH-BAYER-2015-405238

PATIENT
  Age: 74 Year
  Sex: Male

DRUGS (9)
  1. FLUOXETIN [Suspect]
     Active Substance: FLUOXETINE HYDROCHLORIDE
     Dosage: 20 MG, QD
  2. TRITTICO [Concomitant]
     Active Substance: TRAZODONE HYDROCHLORIDE
  3. HALCION [Concomitant]
     Active Substance: TRIAZOLAM
     Dosage: UNK
  4. COVERSUM COMBI [Concomitant]
     Active Substance: INDAPAMIDE
  5. ASPIRIN CARDIO [Suspect]
     Active Substance: ASPIRIN
     Dosage: 100 MG, QD
     Route: 048
     Dates: end: 20150713
  6. ALDACTONE [Concomitant]
     Active Substance: SPIRONOLACTONE
  7. SINTROM [Suspect]
     Active Substance: ACENOCOUMAROL
     Dosage: 1 MG, PRN
     Route: 048
     Dates: end: 20150713
  8. LASIX [Concomitant]
     Active Substance: FUROSEMIDE
  9. SERESTA [Concomitant]
     Active Substance: OXAZEPAM
     Dosage: UNK

REACTIONS (4)
  - Gastric ulcer [Recovering/Resolving]
  - Presyncope [Recovered/Resolved]
  - Haemorrhagic anaemia [Recovering/Resolving]
  - Melaena [Recovered/Resolved]

NARRATIVE: CASE EVENT DATE: 201507
